FAERS Safety Report 9357771 (Version 1)
Quarter: 2013Q2

REPORT INFORMATION
  Report Type: Spontaneous
  Country: CN (occurrence: CN)
  Receive Date: 20130620
  Receipt Date: 20130620
  Transmission Date: 20140414
  Serious: Yes (Other)
  Sender: FDA-Public Use
  Company Number: CN-PFIZER INC-2013179266

PATIENT
  Age: 12 Month
  Sex: Male

DRUGS (1)
  1. CHILDREN^S MOTRIN [Suspect]
     Dosage: UNK
     Route: 048
     Dates: start: 20121112, end: 20121114

REACTIONS (2)
  - Oliguria [Recovered/Resolved]
  - Oedema [Unknown]
